FAERS Safety Report 5350856-3 (Version None)
Quarter: 2007Q2

REPORT INFORMATION
  Report Type: 
  Country: None (occurrence: None)
  Receive Date: 20070608
  Receipt Date: 20070606
  Transmission Date: 20071010
  Serious: Yes (Other)
  Sender: FDA-Public Use
  Company Number: A0654502A

PATIENT
  Sex: Female
  Weight: 44 kg

DRUGS (8)
  1. DIGOXIN [Suspect]
     Indication: ARRHYTHMIA
     Dosage: .25MG THREE TIMES PER WEEK
     Dates: start: 20050101
  2. DILTIAZEM [Concomitant]
     Dates: start: 20060601, end: 20070501
  3. AAS [Concomitant]
  4. ATENOLOL [Concomitant]
     Dates: start: 20060601, end: 20070501
  5. LOSARTAN POTASSIUM [Concomitant]
  6. AMILORIDE HYDROCHLORIDE + CHLORTHALIDONE [Concomitant]
  7. NIMODIPINE [Concomitant]
     Dates: start: 20060601, end: 20070501
  8. FUROSEMIDE [Concomitant]
     Dates: start: 20060601, end: 20070501

REACTIONS (10)
  - APATHY [None]
  - CONFUSIONAL STATE [None]
  - DEPRESSION [None]
  - DIZZINESS [None]
  - FATIGUE [None]
  - HEADACHE [None]
  - LYMPHOMA [None]
  - MALAISE [None]
  - PSYCHOTIC DISORDER [None]
  - WEIGHT DECREASED [None]
